FAERS Safety Report 5852857-5 (Version None)
Quarter: 2008Q3

REPORT INFORMATION
  Report Type: 
  Country: None (occurrence: None)
  Receive Date: 20080821
  Receipt Date: 20080820
  Transmission Date: 20090109
  Serious: Yes (Other)
  Sender: FDA-Public Use
  Company Number: A0743435A

PATIENT
  Age: 55 Year
  Sex: Female

DRUGS (7)
  1. ALLI [Suspect]
     Route: 048
  2. INSULIN [Concomitant]
  3. PLAVIX [Concomitant]
  4. METFORMIN HCL [Concomitant]
  5. GEMFIBROZIL [Concomitant]
  6. ATENOLOL [Concomitant]
  7. ASPIRIN [Concomitant]

REACTIONS (3)
  - ANAL HAEMORRHAGE [None]
  - DIARRHOEA HAEMORRHAGIC [None]
  - RECTAL HAEMORRHAGE [None]
